FAERS Safety Report 7516465-2 (Version None)
Quarter: 2011Q2

REPORT INFORMATION
  Report Type: 
  Country: None (occurrence: None)
  Receive Date: 20110601
  Receipt Date: 20110517
  Transmission Date: 20111010
  Serious: Yes (Death, Hospitalization)
  Sender: FDA-Public Use
  Company Number: A0788120A

PATIENT
  Sex: Male
  Weight: 100.5 kg

DRUGS (6)
  1. AVANDIA [Suspect]
     Route: 048
     Dates: start: 20050301, end: 20070201
  2. AVANDAMET [Suspect]
     Indication: DIABETES MELLITUS
     Route: 048
  3. METFORMIN HCL [Concomitant]
  4. GLYBURIDE [Concomitant]
  5. LORTAB [Concomitant]
  6. NEURONTIN [Concomitant]

REACTIONS (3)
  - CARDIAC FAILURE CONGESTIVE [None]
  - CARDIAC ARREST [None]
  - ACUTE MYOCARDIAL INFARCTION [None]
